FAERS Safety Report 18638265 (Version 2)
Quarter: 2021Q2

REPORT INFORMATION
  Report Type: Spontaneous
  Country: FR (occurrence: FR)
  Receive Date: 20201219
  Receipt Date: 20210519
  Transmission Date: 20210717
  Serious: Yes (Hospitalization)
  Sender: FDA-Public Use
  Company Number: FR-ACCORD-211560

PATIENT
  Age: 47 Year
  Sex: Male
  Weight: 78 kg

DRUGS (5)
  1. IRINOTECAN MEDAC [Suspect]
     Active Substance: IRINOTECAN
     Indication: RECTAL CANCER
     Route: 041
     Dates: start: 20200828
  2. FLUOROURACILE ACCORD [Suspect]
     Active Substance: FLUOROURACIL
     Indication: RECTAL CANCER
     Route: 041
     Dates: start: 20200828
  3. OXALIPLATINE ACCORD [Suspect]
     Active Substance: OXALIPLATIN
     Indication: RECTAL CANCER
     Route: 041
     Dates: start: 20200828
  4. FLUOROURACILE ACCORD [Suspect]
     Active Substance: FLUOROURACIL
     Indication: RECTAL CANCER
     Route: 041
     Dates: start: 20200828
  5. VECTIBIX [Suspect]
     Active Substance: PANITUMUMAB
     Indication: RECTAL CANCER
     Route: 041
     Dates: start: 20200828

REACTIONS (7)
  - Hyperkeratosis [Recovered/Resolved]
  - Folliculitis [Not Recovered/Not Resolved]
  - Asthenia [Not Recovered/Not Resolved]
  - Dermatitis acneiform [Recovered/Resolved]
  - Paraesthesia [Not Recovered/Not Resolved]
  - Nausea [Recovered/Resolved]
  - Diarrhoea [Not Recovered/Not Resolved]

NARRATIVE: CASE EVENT DATE: 20201007
